FAERS Safety Report 4708496-2 (Version None)
Quarter: 2005Q3

REPORT INFORMATION
  Report Type: 
  Country: None (occurrence: None)
  Receive Date: 20050705
  Receipt Date: 20050705
  Transmission Date: 20060218
  Serious: Yes (Other)
  Sender: FDA-Public Use
  Company Number: None

PATIENT
  Age: 90 Year
  Sex: Male
  Weight: 40.3701 kg

DRUGS (1)
  1. ACTIVASE [Suspect]
     Dosage: 0.2 MG T-PA INSTEAD OF TNK

REACTIONS (1)
  - WRONG DRUG ADMINISTERED [None]
